FAERS Safety Report 4409756-5 (Version None)
Quarter: 2004Q3

REPORT INFORMATION
  Report Type: 
  Country: None (occurrence: None)
  Receive Date: 20040723
  Receipt Date: 20040708
  Transmission Date: 20050211
  Serious: Yes (Hospitalization)
  Sender: FDA-Public Use
  Company Number: 201161

PATIENT
  Age: 58 Year
  Sex: Female
  Weight: 66.2252 kg

DRUGS (4)
  1. AVONEX [Suspect]
     Indication: MULTIPLE SCLEROSIS
     Dosage: 30 MCG QW IM
     Route: 030
     Dates: start: 19980101
  2. AVONEX [Suspect]
     Indication: MULTIPLE SCLEROSIS
     Dosage: 30 MCG QW IM
     Route: 030
     Dates: end: 20030101
  3. AVONEX [Suspect]
     Indication: MULTIPLE SCLEROSIS
     Dosage: 30 MCG QW IM
     Route: 030
     Dates: start: 20030101
  4. CARDIZEM [Concomitant]

REACTIONS (6)
  - BRADYCARDIA [None]
  - CEREBROVASCULAR ACCIDENT [None]
  - ORTHOSTATIC HYPOTENSION [None]
  - RASH GENERALISED [None]
  - SYNCOPE [None]
  - TACHYCARDIA [None]
